FAERS Safety Report 8580122-4 (Version None)
Quarter: 2012Q3

REPORT INFORMATION
  Report Type: 
  Country: None (occurrence: None)
  Receive Date: 20120808
  Receipt Date: 20120806
  Transmission Date: 20120928
  Serious: Yes (Other)
  Sender: FDA-Public Use
  Company Number: VE-PFIZER INC-2012165305

PATIENT
  Age: 64 Year
  Sex: Female

DRUGS (1)
  1. LIPITOR [Suspect]
     Dosage: 80 MG, 1X/DAY
     Route: 048
     Dates: start: 20111001

REACTIONS (2)
  - INFECTION PARASITIC [None]
  - ABDOMINAL DISTENSION [None]
